FAERS Safety Report 7525866-8 (Version None)
Quarter: 2011Q2

REPORT INFORMATION
  Report Type: 
  Country: None (occurrence: None)
  Receive Date: 20110606
  Receipt Date: 20110527
  Transmission Date: 20111010
  Serious: Yes (Death, Life-Threatening, Hospitalization, Other)
  Sender: FDA-Public Use
  Company Number: A0929536A

PATIENT
  Age: 42 Year
  Sex: Female

DRUGS (9)
  1. CLONAZEPAM [Concomitant]
  2. ALBUTEROL INHALER [Concomitant]
  3. HERCEPTIN [Concomitant]
  4. PATCH (UNSPECIFIED) [Concomitant]
  5. TYKERB [Suspect]
     Indication: BREAST CANCER
     Dosage: 1000MG PER DAY
     Route: 048
     Dates: start: 20110325
  6. DEXAMETHASONE [Concomitant]
  7. ZOFRAN [Concomitant]
  8. LOMOTIL [Concomitant]
  9. LASIX [Concomitant]

REACTIONS (2)
  - BREAST CANCER [None]
  - DISEASE PROGRESSION [None]
